FAERS Safety Report 4486392-6 (Version None)
Quarter: 2004Q4

REPORT INFORMATION
  Report Type: 
  Country: None (occurrence: None)
  Receive Date: 20041022
  Receipt Date: 20041013
  Transmission Date: 20050328
  Serious: Yes (Hospitalization, Other)
  Sender: FDA-Public Use
  Company Number: 2004077367

PATIENT
  Age: 65 Year
  Sex: Female
  Weight: 127.0072 kg

DRUGS (17)
  1. CORTIZONE -10 (HYDROCORTISONE) [Suspect]
     Indication: RASH PRURITIC
     Dosage: UNSPECIFIED AS NEEDED, DAILY, TOPICAL
     Route: 061
     Dates: start: 19890101
  2. NEOSPORIN [Suspect]
     Indication: SKIN INJURY
     Dosage: AS NEEDED TOPICAL
     Route: 061
     Dates: start: 19940101
  3. GABAPENTIN [Concomitant]
  4. SERETIDE MITE (FLUTICASONE PROPIONATE, SALMETEROL XINAFOATE) [Concomitant]
  5. TRIAMCINOLONE ACETONIDE [Concomitant]
  6. COLESEVELAM HYDROCHLORIDE [Concomitant]
  7. PANTOPRAZOLE [Concomitant]
  8. GLIPIZIDE [Concomitant]
  9. METFORMIN HCL [Concomitant]
  10. SPIRONOLACTONE [Concomitant]
  11. DOCUSATE [Concomitant]
  12. ALPRAZOLAM [Concomitant]
  13. IRBESARTAN [Concomitant]
  14. ZOLPIDEM TARTRATE [Concomitant]
  15. OXYCONTIN [Concomitant]
  16. VICODIN [Concomitant]
  17. MAGNESIUM HYDROXIDE TAB [Concomitant]

REACTIONS (4)
  - ACCIDENT AT WORK [None]
  - DIABETIC COMA [None]
  - GANGLION [None]
  - PERIPHERAL EMBOLISM [None]
